FAERS Safety Report 21924895 (Version 1)
Quarter: 2023Q1

REPORT INFORMATION
  Report Type: Spontaneous
  Country: US (occurrence: None)
  Receive Date: 20230127
  Receipt Date: 20230127
  Transmission Date: 20230417
  Serious: Yes (Hospitalization)
  Sender: FDA-Public Use
  Company Number: None

PATIENT
  Sex: Male
  Weight: 66.7 kg

DRUGS (2)
  1. CARBOPLATIN [Suspect]
     Active Substance: CARBOPLATIN
     Dates: end: 20221025
  2. TAXOL [Suspect]
     Active Substance: PACLITAXEL
     Dates: end: 20221025

REACTIONS (8)
  - Sepsis [None]
  - Pneumonia [None]
  - Haemoglobin abnormal [None]
  - International normalised ratio increased [None]
  - Blood lactic acid increased [None]
  - Blood alkaline phosphatase abnormal [None]
  - Therapy interrupted [None]
  - Haematocrit abnormal [None]

NARRATIVE: CASE EVENT DATE: 20230125
